FAERS Safety Report 8294557-0 (Version None)
Quarter: 2012Q2

REPORT INFORMATION
  Report Type: 
  Country: None (occurrence: None)
  Receive Date: 20120418
  Receipt Date: 20120403
  Transmission Date: 20120825
  Serious: Yes (Hospitalization)
  Sender: FDA-Public Use
  Company Number: LB-SANOFI-AVENTIS-2012SA024113

PATIENT
  Sex: Male
  Weight: 91.5 kg

DRUGS (1)
  1. LANTUS [Suspect]
     Route: 065
     Dates: start: 20120116

REACTIONS (1)
  - CHEST PAIN [None]
